FAERS Safety Report 4344658-4 (Version None)
Quarter: 2004Q2

REPORT INFORMATION
  Report Type: 
  Country: None (occurrence: None)
  Receive Date: 20040421
  Receipt Date: 20040406
  Transmission Date: 20050107
  Serious: No
  Sender: FDA-Public Use
  Company Number: 2004BL002581

PATIENT
  Age: 43 Year
  Sex: Male

DRUGS (3)
  1. FLUORESCEIN SODIUM AND BENOXINATE HYDROCHLORIDE OPHTHALMIC SOLUTION US [Suspect]
     Indication: OPHTHALMOLOGICAL EXAMINATION
     Dosage: 2 GTT; ONCE A DAY; OPHTHALMIC
     Route: 047
     Dates: start: 20031212, end: 20031212
  2. MED FOR HIGH BLOOD PRESSURE [Concomitant]
  3. MED FOR CHOLESTEROL [Concomitant]

REACTIONS (7)
  - APNOEA [None]
  - CONVULSION [None]
  - GAIT DISTURBANCE [None]
  - HYPERHIDROSIS [None]
  - SYNCOPE VASOVAGAL [None]
  - THIRST [None]
  - TREMOR [None]
